FAERS Safety Report 4796796-X (Version None)
Quarter: 2005Q4

REPORT INFORMATION
  Report Type: 
  Country: None (occurrence: None)
  Receive Date: 20051011
  Receipt Date: 20051011
  Transmission Date: 20060501
  Serious: No
  Sender: FDA-Public Use
  Company Number: None

PATIENT
  Age: 29 Year
  Sex: Female
  Weight: 68.0396 kg

DRUGS (5)
  1. VYTORIN [Suspect]
     Indication: BLOOD CHOLESTEROL INCREASED
     Dosage: 10/40 1 PER DAY PO
     Route: 048
     Dates: start: 20041101, end: 20050228
  2. VYTORIN [Suspect]
     Indication: BLOOD CHOLESTEROL INCREASED
     Dosage: 10/80 1 PER DAY PO
     Route: 048
     Dates: start: 20050301, end: 20050730
  3. SEASONALE [Concomitant]
  4. PAXIL [Concomitant]
  5. CYMBALTA [Concomitant]

REACTIONS (4)
  - FATIGUE [None]
  - HEPATOCELLULAR DAMAGE [None]
  - MUSCLE ATROPHY [None]
  - MYALGIA [None]
